FAERS Safety Report 11272027 (Version 1)
Quarter: 2015Q3

REPORT INFORMATION
  Report Type: Spontaneous
  Country: US (occurrence: None)
  Receive Date: 20150713
  Receipt Date: 20150713
  Transmission Date: 20151125
  Serious: Yes (Hospitalization)
  Sender: FDA-Public Use
  Company Number: None

PATIENT
  Age: 48 Year
  Sex: Female
  Weight: 69.4 kg

DRUGS (9)
  1. VITAFUSION MULTIVITES [Concomitant]
  2. VITAMIN D [Concomitant]
     Active Substance: CHOLECALCIFEROL
  3. ANECREAM 5 [Suspect]
     Active Substance: LIDOCAINE
     Dosage: APPLY TO AFFECTED AREA 3 OR 4 TIMES DAILY, APPLIED TO A SURFACE, USUALLY THE SKIN
     Dates: start: 20150629, end: 20150629
  4. PHOSPHORUS [Concomitant]
     Active Substance: PHOSPHORUS
  5. FISH OIL [Concomitant]
     Active Substance: FISH OIL
  6. ZINCE [Concomitant]
  7. CALCIUM [Concomitant]
     Active Substance: CALCIUM
  8. ANECREAM 5 [Suspect]
     Active Substance: LIDOCAINE
     Indication: PROCEDURAL PAIN
     Dosage: APPLY TO AFFECTED AREA 3 OR 4 TIMES DAILY, APPLIED TO A SURFACE, USUALLY THE SKIN
     Dates: start: 20150629, end: 20150629
  9. GINKO BILOBA [Concomitant]
     Active Substance: GINKGO

REACTIONS (4)
  - Heart rate increased [None]
  - Dizziness [None]
  - Wrong technique in product usage process [None]
  - Tremor [None]

NARRATIVE: CASE EVENT DATE: 20150629
